FAERS Safety Report 23563486 (Version 4)
Quarter: 2024Q2

REPORT INFORMATION
  Report Type: Spontaneous
  Country: CA (occurrence: CA)
  Receive Date: 20240226
  Receipt Date: 20240405
  Transmission Date: 20240716
  Serious: Yes (Other)
  Sender: FDA-Public Use
  Company Number: CA-CELLTRION INC.-2023CA020601

PATIENT

DRUGS (13)
  1. INFLECTRA [Suspect]
     Active Substance: INFLIXIMAB-DYYB
     Indication: Colitis ulcerative
     Dosage: 1 DF, WEEK 0 INFUSION IN HOSPITAL
     Route: 042
     Dates: start: 20220918, end: 20220918
  2. INFLECTRA [Suspect]
     Active Substance: INFLIXIMAB-DYYB
     Dosage: 10 MG/KG, 2, 6 WEEKS THEN EVERY 8 WEEKS
     Route: 042
     Dates: start: 20221228, end: 20230201
  3. INFLECTRA [Suspect]
     Active Substance: INFLIXIMAB-DYYB
     Dosage: 900 MG, EVERY 4 WEEKS (ASAP THEN EVERY 4 WEEKS)
     Route: 042
     Dates: start: 20230301, end: 20230329
  4. INFLECTRA [Suspect]
     Active Substance: INFLIXIMAB-DYYB
     Dosage: 900 MG, REINDUCTION WEEK 0 ,2, 6 THEN MAINTENANCE EVERY 4 WEEKS
     Route: 042
     Dates: start: 20230518
  5. INFLECTRA [Suspect]
     Active Substance: INFLIXIMAB-DYYB
     Dosage: 900 MG, REINDUCTION WEEK 0 ,2, 6 THEN MAINTENANCE EVERY 4 WEEKS
     Route: 042
     Dates: start: 20230920
  6. INFLECTRA [Suspect]
     Active Substance: INFLIXIMAB-DYYB
     Dosage: 900 MG, EVERY 4 WEEKS
     Route: 042
     Dates: start: 20231017
  7. INFLECTRA [Suspect]
     Active Substance: INFLIXIMAB-DYYB
     Dosage: 900 MG, EVERY 4 WEEKS
     Route: 042
     Dates: start: 20231115
  8. INFLECTRA [Suspect]
     Active Substance: INFLIXIMAB-DYYB
     Dosage: 900 MG, EVERY 4 WEEKS
     Route: 042
     Dates: start: 20240206
  9. AZATHIOPRINE [Concomitant]
     Active Substance: AZATHIOPRINE
     Dosage: UNK
  10. BUDESONIDE [Concomitant]
     Active Substance: BUDESONIDE
     Dosage: UNK
  11. CIALIS [Concomitant]
     Active Substance: TADALAFIL
     Dosage: UNK
  12. IRON [Concomitant]
     Active Substance: IRON
     Dosage: UNK
  13. PREDNISONE [Concomitant]
     Active Substance: PREDNISONE
     Dosage: UNK

REACTIONS (3)
  - Gastrointestinal disorder [Unknown]
  - Treatment failure [Unknown]
  - Condition aggravated [Not Recovered/Not Resolved]

NARRATIVE: CASE EVENT DATE: 20231115
